FAERS Safety Report 25705873 (Version 1)
Quarter: 2025Q3

REPORT INFORMATION
  Report Type: Spontaneous
  Country: MX (occurrence: MX)
  Receive Date: 20250820
  Receipt Date: 20250820
  Transmission Date: 20251020
  Serious: Yes (Death, Other)
  Sender: NOVARTIS
  Company Number: MX-002147023-NVSC2025MX129611

PATIENT
  Age: 29 Year
  Sex: Male

DRUGS (3)
  1. CYCLOSPORINE [Suspect]
     Active Substance: CYCLOSPORINE
     Indication: Product used for unknown indication
     Route: 065
  2. MYCOPHENOLATE MOFETIL [Suspect]
     Active Substance: MYCOPHENOLATE MOFETIL
     Indication: Product used for unknown indication
     Route: 065
  3. PREDNISONE [Concomitant]
     Active Substance: PREDNISONE
     Indication: Product used for unknown indication
     Route: 065

REACTIONS (9)
  - COVID-19 [Fatal]
  - Fibrosis [Unknown]
  - Renal tubular atrophy [Unknown]
  - Arterial disorder [Unknown]
  - Proteinuria [Unknown]
  - Blood creatinine increased [Unknown]
  - Blood creatinine decreased [Unknown]
  - Albuminuria [Unknown]
  - Nephropathy [Unknown]
